FAERS Safety Report 7815023-X (Version None)
Quarter: 2011Q4

REPORT INFORMATION
  Report Type: 
  Country: None (occurrence: None)
  Receive Date: 20111013
  Receipt Date: 20111013
  Transmission Date: 20120403
  Serious: Yes (Other)
  Sender: FDA-Public Use
  Company Number: None

PATIENT
  Sex: Female
  Weight: 72.5755 kg

DRUGS (1)
  1. ESTRACE [Suspect]
     Indication: URETHRAL ATROPHY
     Dosage: 4 GRAMS ONCE VAGINALLY (ONCE ONLY)
     Route: 067
     Dates: start: 20110809

REACTIONS (3)
  - PAIN [None]
  - MUSCLE SPASMS [None]
  - BACK PAIN [None]
